FAERS Safety Report 5243073-9 (Version None)
Quarter: 2007Q1

REPORT INFORMATION
  Report Type: 
  Country: None (occurrence: None)
  Receive Date: 20070221
  Receipt Date: 20070220
  Transmission Date: 20070707
  Serious: Yes (Hospitalization)
  Sender: FDA-Public Use
  Company Number: US-BOEHRINGER INGELHEIM PHARMACEUTICALS, INC.-2007-BP-02396BP

PATIENT
  Sex: Female

DRUGS (6)
  1. SPIRIVA [Suspect]
     Indication: CHRONIC OBSTRUCTIVE PULMONARY DISEASE
     Route: 055
  2. ADVAIR DISKUS 100/50 [Concomitant]
  3. POTASSIUM CHLORIDE [Concomitant]
  4. BENICAR [Concomitant]
  5. LASIX [Concomitant]
  6. CALCIUM WITH VITAMIN D [Concomitant]

REACTIONS (3)
  - FAECES DISCOLOURED [None]
  - HERPES ZOSTER [None]
  - PNEUMONIA [None]
